FAERS Safety Report 6100542-7 (Version None)
Quarter: 2009Q1

REPORT INFORMATION
  Report Type: 
  Country: None (occurrence: None)
  Receive Date: 20090303
  Receipt Date: 20090218
  Transmission Date: 20090719
  Serious: Yes (Death)
  Sender: FDA-Public Use
  Company Number: JP-SANOFI-SYNTHELABO-A01200902028

PATIENT
  Sex: Male

DRUGS (4)
  1. FLUOROURACIL [Suspect]
     Dosage: UNK
     Route: 040
     Dates: start: 20090126, end: 20090126
  2. FLUOROURACIL [Suspect]
     Dosage: UNK
     Route: 041
     Dates: start: 20090126, end: 20090127
  3. CALCIUM LEVOFOLINATE [Suspect]
     Dosage: UNK
     Route: 041
     Dates: start: 20090126, end: 20090126
  4. ELPLAT [Suspect]
     Indication: RECTAL CANCER
     Dosage: UNK
     Route: 041
     Dates: start: 20090126, end: 20090126

REACTIONS (1)
  - NECROTISING FASCIITIS [None]
